FAERS Safety Report 10330624 (Version 1)
Quarter: 2014Q3

REPORT INFORMATION
  Report Type: Spontaneous
  Country: US (occurrence: None)
  Receive Date: 20140718
  Receipt Date: 20140718
  Transmission Date: 20150326
  Serious: Yes (Other)
  Sender: FDA-Public Use
  Company Number: None

PATIENT
  Age: 56 Year
  Sex: Female

DRUGS (1)
  1. SINUS NASAL PUMP MIST .05% REXALL [Suspect]
     Active Substance: OXYMETAZOLINE HYDROCHLORIDE
     Indication: NASAL CONGESTION

REACTIONS (5)
  - Eye swelling [None]
  - Burning sensation [None]
  - Lacrimation increased [None]
  - Visual impairment [None]
  - Nausea [None]

NARRATIVE: CASE EVENT DATE: 20140717
